FAERS Safety Report 21668043 (Version 1)
Quarter: 2022Q4

REPORT INFORMATION
  Report Type: Spontaneous
  Country: FR (occurrence: FR)
  Receive Date: 20221201
  Receipt Date: 20221201
  Transmission Date: 20230113
  Serious: Yes (Life-Threatening, Hospitalization)
  Sender: FDA-Public Use
  Company Number: None

PATIENT
  Age: 33 Year
  Sex: Female
  Weight: 62 kg

DRUGS (2)
  1. DOSTINEX [Suspect]
     Active Substance: CABERGOLINE
     Indication: Lactation inhibition therapy
     Dosage: 1 MG, SINGLE
     Route: 048
     Dates: start: 20220906, end: 20220906
  2. IBUPROFEN [Suspect]
     Active Substance: IBUPROFEN
     Indication: Neck pain
     Dosage: 1 TABLET, SINGLE
     Route: 048
     Dates: start: 20220910, end: 20220910

REACTIONS (2)
  - Coronary artery dissection [Recovering/Resolving]
  - Vertebrobasilar artery dissection [Recovering/Resolving]

NARRATIVE: CASE EVENT DATE: 20220915
